FAERS Safety Report 8921331 (Version 1)
Quarter: 2012Q4

REPORT INFORMATION
  Report Type: Report from Study
  Country: US (occurrence: US)
  Receive Date: 20121122
  Receipt Date: 20121122
  Transmission Date: 20130627
  Serious: Yes (Hospitalization)
  Sender: FDA-Public Use
  Company Number: US-ABBOTT-12P-163-1008025-00

PATIENT
  Age: 71 Year
  Sex: Female
  Weight: 63.56 kg

DRUGS (4)
  1. CREON [Suspect]
     Indication: PANCREATIC INSUFFICIENCY
     Dosage: Creon 12000; 4 caps by mouth with meals 4 times a day and 2 before snacks twice daily
     Dates: start: 201206
  2. LISINOPRIL [Concomitant]
     Indication: HYPERTENSION
  3. UNKNOWN THYROID MEDICATION [Concomitant]
     Indication: HYPOTHYROIDISM
  4. CHEMOTHERAPEUTICS [Concomitant]
     Indication: PANCREATIC CARCINOMA
     Dates: start: 2012

REACTIONS (1)
  - Nephrolithiasis [Recovering/Resolving]
